FAERS Safety Report 15074556 (Version 1)
Quarter: 2018Q2

REPORT INFORMATION
  Report Type: Spontaneous
  Country: US (occurrence: US)
  Receive Date: 20180607
  Receipt Date: 20180607
  Transmission Date: 20180711
  Serious: Yes (Other)
  Sender: FDA-Public Use
  Company Number: None

PATIENT
  Age: 20 Year
  Sex: Female
  Weight: 62.1 kg

DRUGS (1)
  1. HYDROMORPHONE HYDROCHLORIDE INJECTION [Suspect]
     Active Substance: HYDROMORPHONE HYDROCHLORIDE
     Indication: LIGAMENT OPERATION
     Dosage: ?          QUANTITY:1 DF DOSAGE FORM;OTHER FREQUENCY:PRE-SURGERY;?
     Route: 042
     Dates: start: 20170907, end: 20170907

REACTIONS (8)
  - Middle insomnia [None]
  - Vomiting [None]
  - Product quality issue [None]
  - Product container issue [None]
  - Procedural pain [None]
  - Dehydration [None]
  - Nausea [None]
  - Hypophagia [None]

NARRATIVE: CASE EVENT DATE: 20170907
